FAERS Safety Report 4336315-5 (Version None)
Quarter: 2004Q2

REPORT INFORMATION
  Report Type: 
  Country: None (occurrence: None)
  Receive Date: 20040407
  Receipt Date: 20040324
  Transmission Date: 20050107
  Serious: Yes (Hospitalization, Other)
  Sender: FDA-Public Use
  Company Number: US_020886733

PATIENT
  Age: 22 Year
  Sex: Female
  Weight: 51 kg

DRUGS (2)
  1. HUMALOG [Suspect]
     Dates: start: 20010101
  2. LANTUS [Concomitant]

REACTIONS (7)
  - BLOOD BICARBONATE DECREASED [None]
  - BLOOD GLUCOSE DECREASED [None]
  - BLOOD GLUCOSE INCREASED [None]
  - DEHYDRATION [None]
  - FEELING ABNORMAL [None]
  - HYPOGLYCAEMIA UNAWARENESS [None]
  - MEDICATION ERROR [None]
